FAERS Safety Report 9687899 (Version 1)
Quarter: 2013Q4

REPORT INFORMATION
  Report Type: Spontaneous
  Country: US (occurrence: US)
  Receive Date: 20131114
  Receipt Date: 20131114
  Transmission Date: 20140711
  Serious: No
  Sender: FDA-Public Use
  Company Number: US-PFIZER INC-2013320923

PATIENT
  Sex: Female

DRUGS (1)
  1. ADVIL PM [Suspect]
     Dosage: UNK, ONCE
     Dates: start: 20131108, end: 20131108

REACTIONS (3)
  - Wrong drug administered [Unknown]
  - Overdose [Unknown]
  - Feeling abnormal [Unknown]
